FAERS Safety Report 5782221-9 (Version None)
Quarter: 2008Q2

REPORT INFORMATION
  Report Type: 
  Country: None (occurrence: None)
  Receive Date: 20080623
  Receipt Date: 20071102
  Transmission Date: 20081010
  Serious: No
  Sender: FDA-Public Use
  Company Number: US-ABBOTT-07P-163-0423477-00

PATIENT
  Sex: Male

DRUGS (6)
  1. ULTANE [Suspect]
     Indication: ANAESTHESIA
     Dates: start: 20070701, end: 20070701
  2. PROPOFOL [Concomitant]
     Indication: INTRAOPERATIVE CARE
     Dates: start: 20070701, end: 20070701
  3. ONDANSETRON [Concomitant]
     Indication: INTRAOPERATIVE CARE
     Dates: start: 20070701, end: 20070701
  4. KETOROLAC TROMETHAMINE [Concomitant]
     Indication: INTRAOPERATIVE CARE
     Dates: start: 20070701, end: 20070701
  5. TYLOX [Concomitant]
     Indication: POSTOPERATIVE CARE
     Dates: start: 20070701
  6. IBUROFEN [Concomitant]
     Indication: POSTOPERATIVE CARE
     Dates: start: 20070701

REACTIONS (3)
  - HEPATITIS [None]
  - JAUNDICE [None]
  - WEIGHT DECREASED [None]
